FAERS Safety Report 6226338-3 (Version None)
Quarter: 2009Q2

REPORT INFORMATION
  Report Type: 
  Country: None (occurrence: None)
  Receive Date: 20090612
  Receipt Date: 20090602
  Transmission Date: 20091009
  Serious: Yes (Hospitalization)
  Sender: FDA-Public Use
  Company Number: GB-JNJFOC-20040501540

PATIENT
  Sex: Female
  Weight: 57 kg

DRUGS (8)
  1. REMICADE [Suspect]
     Route: 042
  2. REMICADE [Suspect]
     Indication: PSORIATIC ARTHROPATHY
     Route: 042
  3. VIOXX [Concomitant]
  4. AMITRIPTLINE HYDROCHLORIDE TAB [Concomitant]
  5. METHOTREXATE [Concomitant]
  6. AZATHIOPRINE [Concomitant]
  7. FOLIC ACID [Concomitant]
  8. TRAMADOL HCL [Concomitant]

REACTIONS (1)
  - BASAL CELL CARCINOMA [None]
